FAERS Safety Report 9222265 (Version 2)
Quarter: 2013Q2

REPORT INFORMATION
  Report Type: Spontaneous
  Country: US (occurrence: US)
  Receive Date: 20130410
  Receipt Date: 20130416
  Transmission Date: 20140414
  Serious: Yes (Other)
  Sender: FDA-Public Use
  Company Number: US-PFIZER INC-2013108840

PATIENT
  Sex: 0

DRUGS (1)
  1. AMIODARONE HCL [Suspect]
     Dosage: UNK

REACTIONS (1)
  - Fungal infection [Unknown]
